FAERS Safety Report 7531750-6 (Version None)
Quarter: 2011Q2

REPORT INFORMATION
  Report Type: 
  Country: None (occurrence: None)
  Receive Date: 20110608
  Receipt Date: 20110523
  Transmission Date: 20111010
  Serious: Yes (Death, Hospitalization)
  Sender: FDA-Public Use
  Company Number: FR-ROCHE-695027

PATIENT
  Age: 39 Year
  Sex: Female

DRUGS (7)
  1. RITUXAN [Suspect]
     Route: 042
  2. METHOTREXATE [Suspect]
     Indication: POLYMYOSITIS
     Route: 065
  3. PREDNISONE [Concomitant]
     Indication: POLYMYOSITIS
  4. MYCOPHENOLATE MEFETIL [Suspect]
     Indication: POLYMYOSITIS
     Route: 065
  5. RITUXAN [Suspect]
     Indication: POLYMYOSITIS
     Dosage: FORM: INFUSION
     Route: 042
     Dates: start: 20090101
  6. AZATHIOPRINE SODIUM [Suspect]
     Indication: POLYMYOSITIS
     Route: 065
  7. CYCLOSPORINE [Suspect]
     Indication: POLYMYOSITIS
     Route: 065

REACTIONS (3)
  - PROGRESSIVE MULTIFOCAL LEUKOENCEPHALOPATHY [None]
  - DRUG INEFFECTIVE [None]
  - PNEUMONIA ASPIRATION [None]
